FAERS Safety Report 10558369 (Version 1)
Quarter: 2014Q4

REPORT INFORMATION
  Report Type: Spontaneous
  Country: GB (occurrence: GB)
  Receive Date: 20141031
  Receipt Date: 20141031
  Transmission Date: 20150529
  Serious: Yes (Other)
  Sender: FDA-Public Use
  Company Number: GB-SA-2014SA145238

PATIENT
  Age: 36 Year
  Sex: Female
  Weight: 61.68 kg

DRUGS (1)
  1. CLOMID [Suspect]
     Active Substance: CLOMIPHENE CITRATE
     Indication: INFERTILITY
     Route: 048
     Dates: start: 20140819

REACTIONS (3)
  - Panic disorder [Not Recovered/Not Resolved]
  - Heart rate increased [Unknown]
  - Palpitations [Not Recovered/Not Resolved]

NARRATIVE: CASE EVENT DATE: 20140929
